FAERS Safety Report 6354572-0 (Version None)
Quarter: 2009Q3

REPORT INFORMATION
  Report Type: 
  Country: None (occurrence: None)
  Receive Date: 20090909
  Receipt Date: 20090826
  Transmission Date: 20100115
  Serious: Yes (Other)
  Sender: FDA-Public Use
  Company Number: 8051417

PATIENT
  Age: 10 Year
  Sex: Female
  Weight: 54 kg

DRUGS (3)
  1. KEPPRA [Suspect]
     Indication: EPILEPSY
     Dosage: 250 MG 2/D PO
     Route: 048
     Dates: start: 20090301
  2. EPILIM [Suspect]
     Indication: EPILEPSY
     Dosage: 800 MG 2/D PO
     Route: 048
     Dates: start: 20090501
  3. CLOBAZAM [Concomitant]

REACTIONS (1)
  - ONYCHOMADESIS [None]
